FAERS Safety Report 4355829-5 (Version None)
Quarter: 2004Q2

REPORT INFORMATION
  Report Type: 
  Country: None (occurrence: None)
  Receive Date: 20040505
  Receipt Date: 20040422
  Transmission Date: 20050107
  Serious: Yes (Disabling, Other)
  Sender: FDA-Public Use
  Company Number: 2004027658

PATIENT
  Sex: Male
  Weight: 99.7913 kg

DRUGS (11)
  1. NEURONTIN [Suspect]
     Indication: NEUROPATHY
     Dosage: 2400 MG (THREE TIMES A DAY), ORAL
     Route: 048
     Dates: end: 20040401
  2. TOPIRAMATE [Suspect]
     Indication: NEUROPATHY
     Dosage: 100 MG (DAILY), ORAL
     Route: 048
     Dates: start: 20040401
  3. HYPNOTICS AND SEDATIVES (HYPNOTICS AND SEDATIVES) [Suspect]
     Indication: INSOMNIA
     Dates: end: 20040401
  4. AMLODIPINE BESYLATE [Concomitant]
  5. METFORMIN HCL [Concomitant]
  6. KARVEA HCT (HYDROCHLOROTHIAZIDE, IRBESARTAN) [Concomitant]
  7. OXYBUTYNIN [Concomitant]
  8. SIMVASTATIN [Concomitant]
  9. ALENDRONATE SODIUM [Concomitant]
  10. PROPAFENONE HCL [Concomitant]
  11. ACETYLSALICYLIC ACID SRT [Concomitant]

REACTIONS (12)
  - ACTIVITIES OF DAILY LIVING IMPAIRED [None]
  - ANXIETY [None]
  - COGNITIVE DISORDER [None]
  - CONFUSIONAL STATE [None]
  - DIFFICULTY IN WALKING [None]
  - DISORIENTATION [None]
  - FALL [None]
  - INSOMNIA [None]
  - MEMORY IMPAIRMENT [None]
  - MOBILITY DECREASED [None]
  - SLEEP WALKING [None]
  - TREATMENT NONCOMPLIANCE [None]
